FAERS Safety Report 10556981 (Version 2)
Quarter: 2014Q4

REPORT INFORMATION
  Report Type: Other
  Country: US (occurrence: US)
  Receive Date: 20141031
  Receipt Date: 20141031
  Transmission Date: 20150529
  Serious: Yes (Other)
  Sender: FDA-Public Use
  Company Number: US-LUPIN PHARMACEUTICALS INC.-E2B_00001890

PATIENT
  Age: 54 Year
  Sex: Female
  Weight: 136.2 kg

DRUGS (3)
  1. LISINOPRIL TABLETS USP 20 MG [Suspect]
     Active Substance: LISINOPRIL
     Indication: HYPERTENSION
     Dates: start: 20140113
  2. LISINOPRIL TABLETS USP 20 MG [Suspect]
     Active Substance: LISINOPRIL
     Dates: end: 20140310
  3. HYDROCHLOROTHIAZIDE. [Concomitant]
     Active Substance: HYDROCHLOROTHIAZIDE
     Indication: PRODUCT USED FOR UNKNOWN INDICATION
     Route: 065

REACTIONS (3)
  - Malaise [Recovered/Resolved]
  - Drug ineffective [Unknown]
  - Hypertension [Recovered/Resolved]

NARRATIVE: CASE EVENT DATE: 20140115
